FAERS Safety Report 9189134 (Version 1)
Quarter: 2013Q1

REPORT INFORMATION
  Report Type: Spontaneous
  Country: KR (occurrence: KR)
  Receive Date: 20130326
  Receipt Date: 20130326
  Transmission Date: 20140127
  Serious: Yes (Death)
  Sender: FDA-Public Use
  Company Number: KR-OTSUKA-JP-2013-10673

PATIENT
  Age: 50 Year
  Sex: Male

DRUGS (1)
  1. PLETAAL [Suspect]
     Indication: ARTERIAL OCCLUSIVE DISEASE
     Dosage: 50 MG MILLIGRAM(S), UNK
     Route: 048

REACTIONS (1)
  - Death [Fatal]
